FAERS Safety Report 11256993 (Version 1)
Quarter: 2015Q3

REPORT INFORMATION
  Report Type: Spontaneous
  Country: US (occurrence: US)
  Receive Date: 20150709
  Receipt Date: 20150709
  Transmission Date: 20151125
  Serious: No
  Sender: FDA-Public Use
  Company Number: US-ASTRAZENECA-2015SE64991

PATIENT
  Age: 60 Year
  Sex: Male
  Weight: 157.4 kg

DRUGS (3)
  1. COMBIVENT [Concomitant]
     Active Substance: ALBUTEROL SULFATE\IPRATROPIUM BROMIDE
     Indication: CHRONIC OBSTRUCTIVE PULMONARY DISEASE
     Dosage: 20MCG/100MCG 1 PUFF FOUR TIMES A DAY
     Route: 055
     Dates: start: 2009
  2. SYMBICORT [Suspect]
     Active Substance: BUDESONIDE\FORMOTEROL FUMARATE DIHYDRATE
     Indication: CHRONIC OBSTRUCTIVE PULMONARY DISEASE
     Dosage: 160/4.5 2 PUFFS TWICE A DAY
     Route: 055
     Dates: start: 2009
  3. BLOOD PRESSURE PILL [Concomitant]
     Indication: BLOOD PRESSURE ABNORMAL
     Route: 055

REACTIONS (5)
  - Mobility decreased [Unknown]
  - Device issue [Unknown]
  - Dyspnoea [Unknown]
  - Dysphagia [Unknown]
  - Intentional device misuse [Unknown]

NARRATIVE: CASE EVENT DATE: 2011
